FAERS Safety Report 8151080-1 (Version None)
Quarter: 2012Q1

REPORT INFORMATION
  Report Type: 
  Country: None (occurrence: None)
  Receive Date: 20120220
  Receipt Date: 20120210
  Transmission Date: 20120608
  Serious: Yes (Other)
  Sender: FDA-Public Use
  Company Number: FR-MERCK-1110FRA00094

PATIENT
  Age: 33 Year
  Sex: Female

DRUGS (7)
  1. ISENTRESS [Suspect]
     Route: 048
     Dates: start: 20111108
  2. EMTRICITABINE AND TENOFOVIR DISOPROXIL FUMARATE [Suspect]
     Route: 065
     Dates: start: 20111108
  3. ESCITALOPRAM OXALATE [Suspect]
     Indication: HIV INFECTION
     Route: 048
     Dates: start: 20110509, end: 20111108
  4. ISENTRESS [Suspect]
     Indication: HIV INFECTION
     Route: 048
     Dates: start: 20100101, end: 20110921
  5. CYAMEMAZINE [Suspect]
     Route: 048
  6. EMTRICITABINE AND TENOFOVIR DISOPROXIL FUMARATE [Suspect]
     Indication: HIV INFECTION
     Route: 065
     Dates: start: 20090101, end: 20110921
  7. IRBESARTAN [Concomitant]
     Route: 065
     Dates: start: 20110629

REACTIONS (4)
  - AMYLASE INCREASED [None]
  - PANCREATIC DISORDER [None]
  - BILIARY TRACT DISORDER [None]
  - LIPASE INCREASED [None]
